FAERS Safety Report 10896469 (Version 1)
Quarter: 2015Q1

REPORT INFORMATION
  Report Type: Spontaneous
  Country: US (occurrence: None)
  Receive Date: 20150302
  Receipt Date: 20150302
  Transmission Date: 20150721
  Serious: No
  Sender: FDA-Public Use
  Company Number: None

PATIENT
  Sex: Male
  Weight: 88.45 kg

DRUGS (8)
  1. CLONODINE GENERIC PATCH [Concomitant]
     Active Substance: CLONIDINE
  2. LOSINOPRIL [Concomitant]
  3. TRAMADOL [Concomitant]
     Active Substance: TRAMADOL
  4. ASPIRIN. [Concomitant]
     Active Substance: ASPIRIN
  5. PROBIOTIC [Concomitant]
     Active Substance: PROBIOTICS NOS
  6. SIENTO [Concomitant]
  7. MIRALAX [Concomitant]
     Active Substance: POLYETHYLENE GLYCOL 3350
  8. LUNESTA [Suspect]
     Active Substance: ESZOPICLONE
     Indication: INSOMNIA
     Route: 048
     Dates: start: 2010

REACTIONS (2)
  - Product taste abnormal [None]
  - Product quality issue [None]

NARRATIVE: CASE EVENT DATE: 20150113
